FAERS Safety Report 6656891-7 (Version None)
Quarter: 2010Q1

REPORT INFORMATION
  Report Type: 
  Country: None (occurrence: None)
  Receive Date: 20100329
  Receipt Date: 20100329
  Transmission Date: 20100710
  Serious: Yes (Other)
  Sender: FDA-Public Use
  Company Number: None

PATIENT
  Age: 7 Year
  Sex: Male
  Weight: 24.0406 kg

DRUGS (2)
  1. INTUNIV [Suspect]
     Indication: AGGRESSION
     Dosage: 3 MG ONCE DAILY PO
     Route: 048
     Dates: start: 20100220, end: 20100326
  2. INTUNIV [Suspect]
     Indication: ATTENTION DEFICIT/HYPERACTIVITY DISORDER
     Dosage: 3 MG ONCE DAILY PO
     Route: 048
     Dates: start: 20100220, end: 20100326

REACTIONS (2)
  - NIGHTMARE [None]
  - SLEEP TERROR [None]
